FAERS Safety Report 7210448-8 (Version None)
Quarter: 2010Q4

REPORT INFORMATION
  Report Type: 
  Country: None (occurrence: None)
  Receive Date: 20101221
  Receipt Date: 20101213
  Transmission Date: 20110411
  Serious: Yes (Hospitalization)
  Sender: FDA-Public Use
  Company Number: 2010PROUSA00141

PATIENT
  Age: 70 Year
  Sex: Male
  Weight: 86.2 kg

DRUGS (2)
  1. PROVENGE [Suspect]
     Indication: PROSTATE CANCER METASTATIC
     Dosage: 250 ML, SINGLE, INTRAVENOUS, 250 ML, SINGLE, INTRAVENOUS
     Route: 042
     Dates: start: 20101111, end: 20101111
  2. PROVENGE [Suspect]

REACTIONS (3)
  - CHROMATURIA [None]
  - SMALL INTESTINAL OBSTRUCTION [None]
  - SPINAL CORD COMPRESSION [None]
